FAERS Safety Report 8395390-1 (Version None)
Quarter: 2012Q2

REPORT INFORMATION
  Report Type: 
  Country: None (occurrence: None)
  Receive Date: 20120530
  Receipt Date: 20120517
  Transmission Date: 20120825
  Serious: Yes (Other)
  Sender: FDA-Public Use
  Company Number: US-AMGEN-USASP2012024499

PATIENT
  Age: 55 Year
  Sex: Female
  Weight: 58.05 kg

DRUGS (6)
  1. AMBIEN [Concomitant]
     Dosage: UNK
  2. IMITREX [Concomitant]
     Dosage: UNK
  3. PROLIA [Suspect]
     Indication: OSTEOPOROSIS
     Dosage: 60 MG, Q6MO
     Route: 058
     Dates: start: 20110909
  4. PROLIA [Suspect]
     Dosage: UNK
     Dates: start: 20120309
  5. MIRAPEX [Concomitant]
     Dosage: UNK
  6. ATENOLOL [Concomitant]
     Dosage: UNK

REACTIONS (9)
  - NEUROPATHY PERIPHERAL [None]
  - MIGRAINE [None]
  - HYPOAESTHESIA ORAL [None]
  - TOOTH DISORDER [None]
  - LOOSE TOOTH [None]
  - PARAESTHESIA ORAL [None]
  - EMOTIONAL DISTRESS [None]
  - TOOTHACHE [None]
  - MOOD SWINGS [None]
